FAERS Safety Report 8878598 (Version 1)
Quarter: 2012Q4

REPORT INFORMATION
  Report Type: 
  Country: US (occurrence: US)
  Receive Date: 20121025
  Receipt Date: 20121025
  Transmission Date: 20130627
  Serious: No
  Sender: FDA-Public Use
  Company Number: US-AMGEN-USASP2012023594

PATIENT
  Age: 53 Year
  Sex: Female
  Weight: 40.82 kg

DRUGS (12)
  1. ENBREL [Suspect]
     Indication: RHEUMATOID ARTHRITIS
     Dosage: 50 mg, qwk
     Route: 058
  2. ORENCIA [Concomitant]
     Dosage: 250 mg, UNK
     Route: 058
  3. METHOTREXATE [Concomitant]
     Dosage: 2.5 mg, UNK
     Route: 048
  4. FOLIC ACID [Concomitant]
     Route: 048
  5. CALCIUM                            /00060701/ [Concomitant]
     Route: 048
  6. ESTRADIOL [Concomitant]
     Dosage: 0.5 mg, UNK
     Route: 048
  7. RESTASIS [Concomitant]
     Dosage: 0.05 %, UNK
     Route: 047
  8. PREDNISONE [Concomitant]
     Dosage: 1 mg, UNK
     Route: 048
  9. PLAQUENIL                          /00072602/ [Concomitant]
     Dosage: 200 mg, UNK
     Route: 048
  10. VITAMIN D /00107901/ [Concomitant]
     Dosage: UNK mg, UNK
     Route: 048
  11. TUMS                               /00193601/ [Concomitant]
     Dosage: 500 mg, UNK
     Route: 048
  12. TIMOPTIC [Concomitant]
     Dosage: 0.5 %, UNK
     Route: 047

REACTIONS (1)
  - Therapeutic response decreased [Unknown]
